FAERS Safety Report 4894691-9 (Version None)
Quarter: 2006Q1

REPORT INFORMATION
  Report Type: 
  Country: None (occurrence: None)
  Receive Date: 20060128
  Receipt Date: 20060117
  Transmission Date: 20060701
  Serious: Yes (Other)
  Sender: FDA-Public Use
  Company Number: US-ABBOTT-06P-163-0322597-00

PATIENT
  Sex: Female

DRUGS (2)
  1. HUMIRA [Suspect]
     Indication: RHEUMATOID ARTHRITIS
     Route: 058
     Dates: start: 20030730, end: 20031231
  2. HUMIRA [Suspect]

REACTIONS (6)
  - BACTERAEMIA [None]
  - BREAST HAEMORRHAGE [None]
  - CORONARY ARTERIAL STENT INSERTION [None]
  - MYOCARDIAL INFARCTION [None]
  - OVARIAN DISORDER [None]
  - VAGINAL HAEMORRHAGE [None]
